FAERS Safety Report 23894637 (Version 1)
Quarter: 2024Q2

REPORT INFORMATION
  Report Type: Spontaneous
  Country: US (occurrence: US)
  Receive Date: 20240524
  Receipt Date: 20240524
  Transmission Date: 20240715
  Serious: Yes (Other)
  Sender: FDA-Public Use
  Company Number: US-BELUSA-2024BELLIT0055

PATIENT

DRUGS (3)
  1. HEPARIN SODIUM [Suspect]
     Active Substance: HEPARIN SODIUM
     Indication: Superficial vein thrombosis
     Route: 041
  2. ASPIRIN [Suspect]
     Active Substance: ASPIRIN
     Indication: Superficial vein thrombosis
     Route: 065
  3. CLOPIDOGREL [Suspect]
     Active Substance: CLOPIDOGREL BISULFATE
     Indication: Superficial vein thrombosis
     Route: 065

REACTIONS (1)
  - Treatment failure [Unknown]
